FAERS Safety Report 6528626-X (Version None)
Quarter: 2010Q1

REPORT INFORMATION
  Report Type: 
  Country: None (occurrence: None)
  Receive Date: 20100106
  Receipt Date: 20091209
  Transmission Date: 20100710
  Serious: Yes (Other)
  Sender: FDA-Public Use
  Company Number: PHEH2009US17912

PATIENT
  Sex: Male

DRUGS (3)
  1. SANDOSTATIN LAR [Suspect]
     Indication: ACROMEGALY
     Dosage: 20 MG, UNK
  2. SYNTHROID [Concomitant]
     Dosage: 75 MG, DAILY
  3. FOSAMAX [Concomitant]
     Dosage: UNK

REACTIONS (3)
  - RASH PAPULAR [None]
  - RASH PRURITIC [None]
  - SKIN REACTION [None]
